FAERS Safety Report 20433194 (Version 3)
Quarter: 2022Q1

REPORT INFORMATION
  Report Type: Spontaneous
  Country: US (occurrence: US)
  Receive Date: 20220205
  Receipt Date: 20220311
  Transmission Date: 20220423
  Serious: Yes (Hospitalization)
  Sender: FDA-Public Use
  Company Number: US-SA-SAC20220131001250

PATIENT
  Age: 33 Year
  Sex: Male

DRUGS (3)
  1. DUPIXENT [Suspect]
     Active Substance: DUPILUMAB
     Indication: Dermatitis atopic
     Dosage: 600 MG, 1X, INJ 600MG 2P SQ D1
     Route: 058
     Dates: start: 202112, end: 202112
  2. DUPIXENT [Suspect]
     Active Substance: DUPILUMAB
     Dosage: 300 MG, QOW
     Route: 058
     Dates: start: 202112, end: 20211215
  3. DUPIXENT [Suspect]
     Active Substance: DUPILUMAB
     Dosage: 300 MG, QOW,300MG 1P Q 2 WS S15
     Route: 058

REACTIONS (4)
  - Sinusitis [Unknown]
  - Conjunctivitis [Unknown]
  - Dry eye [Unknown]
  - Product dose omission issue [Unknown]
